APPROVED DRUG PRODUCT: VERILOID
Active Ingredient: ALKAVERVIR
Strength: 3MG
Dosage Form/Route: TABLET;ORAL
Application: N007336 | Product #003
Applicant: 3M PHARMACEUTICALS INC
Approved: Approved Prior to Jan 1, 1982 | RLD: No | RS: No | Type: DISCN